APPROVED DRUG PRODUCT: ZALEPLON
Active Ingredient: ZALEPLON
Strength: 10MG
Dosage Form/Route: CAPSULE;ORAL
Application: A077505 | Product #002 | TE Code: AB
Applicant: CHARTWELL MOLECULAR HOLDINGS LLC
Approved: Jun 20, 2008 | RLD: No | RS: No | Type: RX